FAERS Safety Report 5501481-2 (Version None)
Quarter: 2007Q4

REPORT INFORMATION
  Report Type: 
  Country: None (occurrence: None)
  Receive Date: 20071030
  Receipt Date: 20071018
  Transmission Date: 20080405
  Serious: Yes (Other)
  Sender: FDA-Public Use
  Company Number: US-JNJFOC-20071005136

PATIENT
  Sex: Female
  Weight: 61.24 kg

DRUGS (4)
  1. ORTHO EVRA [Suspect]
     Indication: ACNE
     Route: 062
  2. ORTHO EVRA [Suspect]
     Indication: HORMONE LEVEL ABNORMAL
     Route: 062
  3. ORTHO EVRA [Suspect]
     Indication: ENDOMETRIOSIS
     Route: 062
  4. ACIPHEX [Concomitant]
     Indication: GASTROOESOPHAGEAL REFLUX DISEASE

REACTIONS (3)
  - INAPPROPRIATE SCHEDULE OF DRUG ADMINISTRATION [None]
  - NEUROPATHY PERIPHERAL [None]
  - OPTIC NEUROPATHY [None]
